FAERS Safety Report 17692270 (Version 8)
Quarter: 2020Q2

REPORT INFORMATION
  Report Type: Spontaneous
  Country: US (occurrence: US)
  Receive Date: 20200422
  Receipt Date: 20200616
  Transmission Date: 20200714
  Serious: No
  Sender: FDA-Public Use
  Company Number: US-PFIZER INC-2020157194

PATIENT
  Age: 74 Year
  Sex: Female
  Weight: 70.75 kg

DRUGS (3)
  1. XELJANZ XR [Suspect]
     Active Substance: TOFACITINIB CITRATE
     Indication: RHEUMATOID ARTHRITIS
     Dosage: 11 MG, 1X/DAY
     Route: 048
     Dates: start: 20200410, end: 202004
  2. XELJANZ XR [Suspect]
     Active Substance: TOFACITINIB CITRATE
     Dosage: 11 MG, 1X/DAY
     Route: 048
  3. XELJANZ XR [Suspect]
     Active Substance: TOFACITINIB CITRATE
     Dosage: 11 MG, 2X/DAY
     Dates: start: 202004

REACTIONS (11)
  - Pain in extremity [Unknown]
  - Drug ineffective [Unknown]
  - Malaise [Unknown]
  - Prescribed overdose [Unknown]
  - General physical health deterioration [Unknown]
  - Discomfort [Unknown]
  - Arthralgia [Unknown]
  - Hypertension [Unknown]
  - Nausea [Unknown]
  - Weight decreased [Unknown]
  - Pain [Unknown]

NARRATIVE: CASE EVENT DATE: 202004
